FAERS Safety Report 24055175 (Version 2)
Quarter: 2024Q3

REPORT INFORMATION
  Report Type: Spontaneous
  Country: US (occurrence: US)
  Receive Date: 20240705
  Receipt Date: 20240708
  Transmission Date: 20241017
  Serious: Yes (Other)
  Sender: BAUSCH AND LOMB
  Company Number: US-BAUSCH-BL-2024-010143

PATIENT
  Age: 77 Year
  Sex: Female

DRUGS (3)
  1. XIFAXAN [Suspect]
     Active Substance: RIFAXIMIN
     Indication: Irritable bowel syndrome
     Route: 048
     Dates: start: 20240625, end: 20240628
  2. XIFAXAN [Suspect]
     Active Substance: RIFAXIMIN
     Indication: Gastrointestinal bacterial overgrowth
  3. PREDNISONE [Suspect]
     Active Substance: PREDNISONE
     Indication: Product used for unknown indication
     Route: 065

REACTIONS (20)
  - Blood pressure systolic decreased [Unknown]
  - Paraesthesia oral [Unknown]
  - Colitis ulcerative [Unknown]
  - Visual impairment [Unknown]
  - Back pain [Unknown]
  - Feeling abnormal [Unknown]
  - Swelling [Unknown]
  - Erythema [Unknown]
  - Blood pressure increased [Unknown]
  - Skin burning sensation [Unknown]
  - Sunburn [Unknown]
  - Oxygen saturation decreased [Unknown]
  - Peripheral swelling [Unknown]
  - Tinnitus [Unknown]
  - Rash macular [Unknown]
  - Urticaria [Unknown]
  - Pruritus [Unknown]
  - Headache [Unknown]
  - Dizziness [Unknown]
  - Nausea [Unknown]

NARRATIVE: CASE EVENT DATE: 20240625
